FAERS Safety Report 9682260 (Version 2)
Quarter: 2014Q1

REPORT INFORMATION
  Report Type: Spontaneous
  Country: GB (occurrence: GB)
  Receive Date: 20131112
  Receipt Date: 20140120
  Transmission Date: 20141002
  Serious: Yes (Death, Life-Threatening)
  Sender: FDA-Public Use
  Company Number: GB-ROCHE-1298953

PATIENT
  Age: 73 Year
  Sex: Female
  Weight: 69 kg

DRUGS (7)
  1. ZELBORAF [Suspect]
     Indication: METASTATIC MALIGNANT MELANOMA
     Route: 048
     Dates: start: 20130522, end: 20130622
  2. AMLODIPINE [Concomitant]
     Indication: HYPERTENSION
  3. ATENOLOL [Concomitant]
     Indication: HYPERTENSION
  4. LANSOPRAZOLE [Concomitant]
     Indication: GASTROOESOPHAGEAL REFLUX DISEASE
  5. OXYCONTIN [Concomitant]
     Indication: PAIN
     Route: 048
  6. SODIUM VALPROATE [Concomitant]
     Indication: EPILEPSY
  7. VENLAFAXINE [Concomitant]
     Indication: DEPRESSED MOOD

REACTIONS (8)
  - Multi-organ failure [Fatal]
  - Rash [Not Recovered/Not Resolved]
  - Respiratory failure [Unknown]
  - Shock [Unknown]
  - Toxic epidermal necrolysis [Not Recovered/Not Resolved]
  - Renal impairment [Unknown]
  - Confusional state [Unknown]
  - Blister [Unknown]
